FAERS Safety Report 8355188-7 (Version None)
Quarter: 2012Q2

REPORT INFORMATION
  Report Type: 
  Country: None (occurrence: None)
  Receive Date: 20120511
  Receipt Date: 20120504
  Transmission Date: 20120825
  Serious: Yes (Other)
  Sender: FDA-Public Use
  Company Number: ES-AMGEN-ESPSP2012028501

PATIENT
  Weight: 2.2 kg

DRUGS (22)
  1. IRON                               /00023503/ [Concomitant]
     Dosage: 200 UNK, QMO
     Route: 064
  2. DALTEPARIN SODIUM [Concomitant]
     Dosage: 5000 UNK, UNK
     Route: 064
  3. ALLOPURINOL [Concomitant]
     Route: 064
  4. CALCITRIOL [Concomitant]
     Route: 064
  5. DARBEPOETIN ALFA [Suspect]
     Dosage: 80 MUG, QWK
     Route: 064
  6. DARBEPOETIN ALFA [Suspect]
     Dosage: 100 MUG, QWK
     Route: 064
  7. METHYLDOPA [Concomitant]
     Dosage: 750 MG, UNK
     Route: 064
  8. IRON                               /00023503/ [Concomitant]
     Dosage: 200 UNK, QMO
     Route: 064
  9. DARBEPOETIN ALFA [Suspect]
     Dosage: 60 MUG, QWK
     Route: 064
     Dates: start: 20080701
  10. DARBEPOETIN ALFA [Suspect]
     Dosage: 150 MUG, QWK
     Route: 064
  11. FOLIC ACID [Concomitant]
     Route: 064
  12. IRON                               /00023503/ [Concomitant]
     Dosage: 200 UNK, QMO
     Route: 064
  13. IRON                               /00023503/ [Concomitant]
     Dosage: 400 UNK, QMO
     Route: 064
  14. IRON                               /00023503/ [Concomitant]
     Dosage: 800 UNK, QMO
     Route: 064
  15. DALTEPARIN SODIUM [Concomitant]
     Dosage: 2500 IU, UNK
     Route: 064
  16. METHYLDOPA [Concomitant]
     Dosage: 1000 MG, UNK
     Route: 064
  17. METHYLDOPA [Concomitant]
     Dosage: 1250 MG, UNK
     Route: 064
  18. CORTICOSTEROIDS [Concomitant]
     Route: 064
  19. DARBEPOETIN ALFA [Suspect]
     Dosage: 120 MUG, QWK
     Route: 064
  20. IRON                               /00023503/ [Concomitant]
     Dosage: 800 UNK, QMO
     Route: 064
  21. VITAMIN B COMPLEX CAP [Concomitant]
     Route: 064
  22. METHYLDOPA [Concomitant]
     Dosage: 1000 MG, UNK
     Route: 064

REACTIONS (3)
  - MATERNAL DRUGS AFFECTING FOETUS [None]
  - FOETAL MACROSOMIA [None]
  - PREMATURE BABY [None]
